FAERS Safety Report 7537740-1 (Version None)
Quarter: 2011Q2

REPORT INFORMATION
  Report Type: 
  Country: None (occurrence: None)
  Receive Date: 20110609
  Receipt Date: 20110603
  Transmission Date: 20111010
  Serious: Yes (Hospitalization, Other)
  Sender: FDA-Public Use
  Company Number: SE-PFIZER INC-2011123023

PATIENT
  Age: 84 Year
  Sex: Male

DRUGS (11)
  1. OXYCONTIN [Concomitant]
     Dosage: 5 MG, UNK
  2. OMEPRAZOLE [Concomitant]
     Dosage: UNK
  3. MOVIPREP [Concomitant]
     Dosage: UNK
  4. MIRTAZAPINE [Concomitant]
     Dosage: UNK
  5. LYRICA [Suspect]
     Indication: DEPRESSION
     Dosage: 150 MG, 1X/DAY
     Route: 048
     Dates: end: 20110326
  6. METOPROLOL [Concomitant]
     Dosage: UNK
  7. CLOPIDOGREL [Concomitant]
     Dosage: UNK
  8. TROMBYL [Concomitant]
     Dosage: 75 MG, UNK
  9. PREDNISOLONE [Concomitant]
     Dosage: UNK
  10. OXYCODONE HCL [Concomitant]
     Dosage: 5 MG, UNK
  11. ACETAMINOPHEN [Concomitant]
     Dosage: 500 MG, UNK

REACTIONS (3)
  - CONFUSIONAL STATE [None]
  - FALL [None]
  - DISORIENTATION [None]
